FAERS Safety Report 13880446 (Version 2)
Quarter: 2017Q4

REPORT INFORMATION
  Report Type: Spontaneous
  Country: CA (occurrence: CA)
  Receive Date: 20170818
  Receipt Date: 20171103
  Transmission Date: 20180320
  Serious: Yes (Other)
  Sender: FDA-Public Use
  Company Number: CA-TEVA-797492ACC

PATIENT
  Sex: Male

DRUGS (2)
  1. TEVA-DILTIAZEM HCL ER [Suspect]
     Active Substance: DILTIAZEM HYDROCHLORIDE
     Indication: HYPERTENSION
     Dosage: EXTENDED RELEASE
  2. TEVA-DILTIAZEM HCL ER [Suspect]
     Active Substance: DILTIAZEM HYDROCHLORIDE
     Indication: HEART RATE INCREASED

REACTIONS (4)
  - Heart rate increased [Recovered/Resolved]
  - Product dosage form issue [Unknown]
  - Hypertensive crisis [Recovered/Resolved]
  - Product packaging issue [Unknown]
